FAERS Safety Report 5653968-X (Version None)
Quarter: 2008Q1

REPORT INFORMATION
  Report Type: 
  Country: None (occurrence: None)
  Receive Date: 20080306
  Receipt Date: 20080225
  Transmission Date: 20080703
  Serious: Yes (Hospitalization, Other)
  Sender: FDA-Public Use
  Company Number: US-PFIZER INC-2007082806

PATIENT
  Sex: Male
  Weight: 77.1 kg

DRUGS (4)
  1. CELEBREX [Suspect]
     Indication: ANKYLOSING SPONDYLITIS
  2. BEXTRA [Suspect]
     Indication: ARTHRITIS
     Route: 048
  3. BEXTRA [Suspect]
     Indication: ANKYLOSING SPONDYLITIS
  4. VIOXX [Suspect]
     Route: 048

REACTIONS (3)
  - CARDIOVASCULAR DISORDER [None]
  - DEPRESSION [None]
  - MYOCARDIAL INFARCTION [None]
